FAERS Safety Report 6389388-2 (Version None)
Quarter: 2009Q4

REPORT INFORMATION
  Report Type: 
  Country: None (occurrence: None)
  Receive Date: 20091006
  Receipt Date: 20090924
  Transmission Date: 20100525
  Serious: Yes (Hospitalization)
  Sender: FDA-Public Use
  Company Number: US-ELI_LILLY_AND_COMPANY-US200908006005

PATIENT
  Sex: Female

DRUGS (10)
  1. FORTEO [Suspect]
     Indication: OSTEOPOROSIS
     Dosage: 20 UG, DAILY (1/D)
     Dates: start: 20090701
  2. FORTEO [Suspect]
     Dosage: 20 UG, DAILY (1/D)
  3. LYRICA [Concomitant]
  4. NEXIUM [Concomitant]
  5. LOTREL [Concomitant]
  6. ZANTAC [Concomitant]
  7. RANITIDINE [Concomitant]
  8. SYNTHROID [Concomitant]
  9. MOTRIN [Concomitant]
     Dosage: 600 MG, AS NEEDED
  10. COMBIVENT [Concomitant]

REACTIONS (12)
  - DIZZINESS [None]
  - GAIT DISTURBANCE [None]
  - GASTRIC DISORDER [None]
  - HEADACHE [None]
  - HYPERTENSION [None]
  - INCORRECT STORAGE OF DRUG [None]
  - JOINT ARTHROPLASTY [None]
  - JOINT STIFFNESS [None]
  - LOCALISED INFECTION [None]
  - OEDEMA PERIPHERAL [None]
  - SPEECH DISORDER [None]
  - SWELLING [None]
